FAERS Safety Report 12830158 (Version 1)
Quarter: 2016Q4

REPORT INFORMATION
  Report Type: Report from Study
  Country: IT (occurrence: IT)
  Receive Date: 20161007
  Receipt Date: 20161007
  Transmission Date: 20170207
  Serious: Yes (Life-Threatening, Hospitalization)
  Sender: FDA-Public Use
  Company Number: IT-B.I. PHARMACEUTICALS,INC./RIDGEFIELD-2016-BI-32335BI

PATIENT
  Age: 72 Year
  Sex: Male
  Weight: 78 kg

DRUGS (3)
  1. TORVAS [Concomitant]
     Indication: HYPERCHOLESTEROLAEMIA
     Route: 048
  2. DABIGATRAN [Suspect]
     Active Substance: DABIGATRAN
     Indication: CEREBROVASCULAR ACCIDENT
     Route: 048
     Dates: start: 20151119, end: 20160514
  3. ZYLORIC [Concomitant]
     Active Substance: ALLOPURINOL
     Indication: HYPERURICAEMIA
     Route: 048

REACTIONS (1)
  - Cardiac failure [Recovered/Resolved]

NARRATIVE: CASE EVENT DATE: 20160508
